FAERS Safety Report 6165283-9 (Version None)
Quarter: 2009Q2

REPORT INFORMATION
  Report Type: 
  Country: None (occurrence: None)
  Receive Date: 20090423
  Receipt Date: 20090420
  Transmission Date: 20091009
  Serious: Yes (Disabling, Other)
  Sender: FDA-Public Use
  Company Number: B0566155A

PATIENT
  Age: 67 Year
  Sex: Female

DRUGS (10)
  1. CLENIL MODULITE [Suspect]
     Indication: ASTHMA
     Dosage: 100MCG PER DAY
     Route: 055
     Dates: start: 20090301, end: 20090301
  2. SEREVENT [Suspect]
     Indication: DRUG USE FOR UNKNOWN INDICATION
     Route: 055
  3. SERETIDE [Suspect]
     Indication: DRUG USE FOR UNKNOWN INDICATION
     Route: 055
  4. SYMBICORT [Suspect]
     Indication: DRUG USE FOR UNKNOWN INDICATION
     Route: 055
  5. OMEPRAZOL [Concomitant]
     Dosage: 20MG PER DAY
     Route: 048
  6. MOMETASONE FUROATE [Concomitant]
     Dosage: 50MG PER DAY
     Route: 045
  7. SALBUTAMOL [Concomitant]
     Route: 055
  8. CLARITHROMYCIN [Concomitant]
     Dosage: 50MG PER DAY
     Route: 048
  9. PREDNISOLONE [Concomitant]
     Dosage: 5MG PER DAY
     Route: 048
  10. SALMETEROL [Concomitant]

REACTIONS (3)
  - ADVERSE EVENT [None]
  - OROPHARYNGEAL PAIN [None]
  - RASH [None]
